FAERS Safety Report 25885005 (Version 1)
Quarter: 2025Q4

REPORT INFORMATION
  Report Type: Spontaneous
  Country: US (occurrence: US)
  Receive Date: 20251006
  Receipt Date: 20251006
  Transmission Date: 20260118
  Serious: No
  Sender: RANBAXY
  Company Number: US-SUN PHARMACEUTICAL INDUSTRIES LTD-2025R1-500857

PATIENT
  Age: 61 Year
  Sex: Female

DRUGS (1)
  1. CEQUA [Suspect]
     Active Substance: CYCLOSPORINE
     Indication: Sicca syndrome
     Dosage: UNK
     Route: 047

REACTIONS (2)
  - Product dose omission issue [Unknown]
  - Product use issue [Unknown]
